FAERS Safety Report 8341106-4 (Version None)
Quarter: 2012Q2

REPORT INFORMATION
  Report Type: 
  Country: None (occurrence: None)
  Receive Date: 20120507
  Receipt Date: 20120501
  Transmission Date: 20120825
  Serious: Yes (Hospitalization)
  Sender: FDA-Public Use
  Company Number: US-GLAXOSMITHKLINE-A0974124A

PATIENT
  Age: 47 Year
  Sex: Female
  Weight: 105 kg

DRUGS (2)
  1. FLOLAN [Suspect]
     Indication: PULMONARY ARTERIAL HYPERTENSION
     Dosage: 10NGKM SEE DOSAGE TEXT
     Route: 042
     Dates: start: 20090827
  2. REVATIO [Concomitant]
     Dosage: 20MG THREE TIMES PER DAY
     Route: 048

REACTIONS (1)
  - MEDICAL DEVICE COMPLICATION [None]
